FAERS Safety Report 6004055-2 (Version None)
Quarter: 2008Q4

REPORT INFORMATION
  Report Type: 
  Country: None (occurrence: None)
  Receive Date: 20081216
  Receipt Date: 20081205
  Transmission Date: 20090506
  Serious: Yes (Hospitalization)
  Sender: FDA-Public Use
  Company Number: B0549300A

PATIENT
  Age: 93 Year
  Sex: Female

DRUGS (20)
  1. AUGMENTIN '125' [Suspect]
     Indication: LUNG INFECTION
     Dosage: 3UNIT PER DAY
     Route: 042
     Dates: start: 20081002, end: 20081004
  2. AMOXICILLIN + CLAVULANATE POTASSIUM [Suspect]
     Indication: DRUG USE FOR UNKNOWN INDICATION
     Dosage: 3UNIT PER DAY
     Route: 048
     Dates: start: 20081005, end: 20081007
  3. KAYEXALATE [Suspect]
     Dosage: 1UNIT PER DAY
     Dates: start: 20081006, end: 20081006
  4. MAGNE B6 [Suspect]
     Route: 048
     Dates: end: 20081006
  5. ZOLPIDEM [Concomitant]
  6. COVERSYL [Concomitant]
  7. FUROSEMID [Concomitant]
  8. DIFFU-K [Concomitant]
  9. STABLON [Concomitant]
  10. PLAVIX [Concomitant]
  11. CEFTAZIDIME [Concomitant]
  12. COLCHICINE [Concomitant]
  13. OMEPRAZOLE [Concomitant]
  14. ALDACTONE [Concomitant]
  15. ZYLORIC [Concomitant]
  16. CARDENSIEL [Concomitant]
  17. VALIUM [Concomitant]
  18. EXEMESTANE [Concomitant]
  19. ALBUTEROL SULFATE [Concomitant]
  20. LOVENOX [Concomitant]

REACTIONS (2)
  - PRURITUS [None]
  - RASH ERYTHEMATOUS [None]
